FAERS Safety Report 9638531 (Version 3)
Quarter: 2013Q4

REPORT INFORMATION
  Report Type: Spontaneous
  Country: US (occurrence: US)
  Receive Date: 20131022
  Receipt Date: 20131219
  Transmission Date: 20140711
  Serious: Yes (Death, Other)
  Sender: FDA-Public Use
  Company Number: US-CELGENEUS-163-POMAL-13103680

PATIENT
  Age: 71 Year
  Sex: Female

DRUGS (3)
  1. POMALYST [Suspect]
     Indication: PLASMA CELL MYELOMA
     Dosage: 2 MILLIGRAM
     Route: 048
     Dates: start: 20130828, end: 2013
  2. DECADRON [Concomitant]
     Indication: PLASMA CELL MYELOMA
     Route: 065
     Dates: start: 201106, end: 201307
  3. DECADRON [Concomitant]
     Route: 065
     Dates: start: 20130828, end: 20130929

REACTIONS (3)
  - Death [Fatal]
  - Plasma cell myeloma [Fatal]
  - Platelet count decreased [Unknown]
